FAERS Safety Report 19467763 (Version 1)
Quarter: 2021Q2

REPORT INFORMATION
  Report Type: Spontaneous
  Country: US (occurrence: US)
  Receive Date: 20210628
  Receipt Date: 20210628
  Transmission Date: 20210717
  Serious: No
  Sender: FDA-Public Use
  Company Number: None

PATIENT

DRUGS (1)
  1. MARCAINE [Suspect]
     Active Substance: BUPIVACAINE HYDROCHLORIDE
     Route: 037

REACTIONS (2)
  - Therapeutic product ineffective [None]
  - Product measured potency issue [None]

NARRATIVE: CASE EVENT DATE: 20210623
